FAERS Safety Report 7357198-5 (Version None)
Quarter: 2011Q1

REPORT INFORMATION
  Report Type: 
  Country: None (occurrence: None)
  Receive Date: 20110317
  Receipt Date: 20110314
  Transmission Date: 20110831
  Serious: No
  Sender: FDA-Public Use
  Company Number: US-PFIZER INC-2011022132

PATIENT
  Sex: Male

DRUGS (1)
  1. AZITHROMYCIN [Suspect]
     Dosage: UNK
     Route: 041
     Dates: start: 20100414, end: 20100625

REACTIONS (1)
  - TREMOR [None]
